FAERS Safety Report 12622432 (Version 5)
Quarter: 2017Q2

REPORT INFORMATION
  Report Type: Report from Study
  Country: GB (occurrence: GB)
  Receive Date: 20160804
  Receipt Date: 20170511
  Transmission Date: 20170830
  Serious: Yes (Hospitalization, Other)
  Sender: FDA-Public Use
  Company Number: PHHO2015GB016789

PATIENT
  Age: 71 Year
  Sex: Male
  Weight: 59.3 kg

DRUGS (14)
  1. MORPHINE SULFATE. [Concomitant]
     Active Substance: MORPHINE SULFATE
     Indication: PAIN
     Dosage: 5 MG, 2-4 HOURLY PRN
     Route: 048
     Dates: start: 20140401
  2. MORPHINE SULFATE MR [Concomitant]
     Indication: PAIN
     Dosage: 10 MG, BID
     Route: 048
     Dates: start: 20140401
  3. BISOPROLOL [Concomitant]
     Active Substance: BISOPROLOL
     Dosage: 1.25 MG, UNK
     Route: 048
  4. AMOXICILLIN. [Concomitant]
     Active Substance: AMOXICILLIN
     Indication: PRODUCT USED FOR UNKNOWN INDICATION
     Dosage: 500 MG, TID
     Route: 048
     Dates: start: 20141112, end: 20141119
  5. VOTRIENT [Suspect]
     Active Substance: PAZOPANIB HYDROCHLORIDE
     Indication: METASTATIC RENAL CELL CARCINOMA
     Dosage: 800 MG, QD
     Route: 048
     Dates: start: 20141006, end: 20141019
  6. METOCLOPRAMIDE. [Concomitant]
     Active Substance: METOCLOPRAMIDE
     Indication: VOMITING
     Dosage: 10 MG, TID PRN
     Route: 048
     Dates: start: 20141006
  7. TINZAPARIN [Concomitant]
     Active Substance: TINZAPARIN
     Indication: PULMONARY EMBOLISM
     Dosage: 1000 U, QD
     Route: 058
     Dates: start: 20141107
  8. BISOPROLOL [Concomitant]
     Active Substance: BISOPROLOL
     Indication: CARDIAC FAILURE
     Dosage: 2.5 MG, QD
     Route: 048
     Dates: start: 20141118
  9. BISOPROLOL [Concomitant]
     Active Substance: BISOPROLOL
     Dosage: 2.5 MG, QD
     Route: 048
  10. BUMETANIDE. [Concomitant]
     Active Substance: BUMETANIDE
     Indication: CARDIAC FAILURE
     Dosage: 1 MG, BID
     Route: 048
     Dates: start: 20141118
  11. ISOSORBIDE MONONITRATE. [Concomitant]
     Active Substance: ISOSORBIDE MONONITRATE
     Indication: RENAL CELL CARCINOMA
     Dosage: 30 MG, QD
     Route: 048
     Dates: start: 20141118
  12. HYDRALAZINE [Concomitant]
     Active Substance: HYDRALAZINE HYDROCHLORIDE
     Indication: CARDIAC FAILURE
     Dosage: 25 MG, BID
     Route: 065
  13. VOTRIENT [Suspect]
     Active Substance: PAZOPANIB HYDROCHLORIDE
     Dosage: 600 MG, QD
     Route: 048
     Dates: start: 20141020, end: 20141107
  14. ISOSORBIDE MONONITRATE. [Concomitant]
     Active Substance: ISOSORBIDE MONONITRATE
     Indication: CARDIAC FAILURE
     Dosage: 10 MG, BID
     Route: 048

REACTIONS (9)
  - Cardiac failure [Recovered/Resolved]
  - Pleuritic pain [Recovered/Resolved]
  - Pneumonia [Recovered/Resolved]
  - Pulmonary embolism [Recovering/Resolving]
  - Oedema peripheral [Not Recovered/Not Resolved]
  - Abdominal pain [Unknown]
  - Ejection fraction decreased [Not Recovered/Not Resolved]
  - Dyspnoea [Not Recovered/Not Resolved]
  - Fatigue [Not Recovered/Not Resolved]

NARRATIVE: CASE EVENT DATE: 20141107
